FAERS Safety Report 9919592 (Version 3)
Quarter: 2014Q4

REPORT INFORMATION
  Report Type: Report from Study
  Country: HK (occurrence: HK)
  Receive Date: 20140224
  Receipt Date: 20141014
  Transmission Date: 20150529
  Serious: Yes (Hospitalization)
  Sender: FDA-Public Use
  Company Number: HK-US-EMD SERONO, INC.-7262327

PATIENT
  Sex: Female

DRUGS (1)
  1. REBIF [Suspect]
     Active Substance: INTERFERON BETA-1A
     Indication: PRODUCT USED FOR UNKNOWN INDICATION

REACTIONS (6)
  - Vision blurred [Unknown]
  - Muscular weakness [Unknown]
  - Injection site pain [Unknown]
  - Multiple sclerosis relapse [Unknown]
  - Headache [Unknown]
  - Hypoaesthesia [Unknown]
